FAERS Safety Report 9701515 (Version 2)
Quarter: 2013Q4

REPORT INFORMATION
  Report Type: Report from Study
  Country: US (occurrence: US)
  Receive Date: 20131121
  Receipt Date: 20131213
  Transmission Date: 20140711
  Serious: Yes (Other)
  Sender: FDA-Public Use
  Company Number: US-US-EMD SERONO, INC.-7250631

PATIENT
  Age: 61 Year
  Sex: Female

DRUGS (1)
  1. REBIF [Suspect]
     Indication: PRODUCT USED FOR UNKNOWN INDICATION
     Route: 058
     Dates: start: 20100510

REACTIONS (8)
  - Eosinophilic oesophagitis [Recovered/Resolved]
  - Oesophageal stenosis [Recovered/Resolved]
  - Suicidal ideation [Recovered/Resolved]
  - Burning sensation [Recovered/Resolved]
  - Unevaluable event [Unknown]
  - Thyroid disorder [Unknown]
  - Red blood cell count decreased [Unknown]
  - Injection site pain [Not Recovered/Not Resolved]
